FAERS Safety Report 5343342-8 (Version None)
Quarter: 2007Q2

REPORT INFORMATION
  Report Type: 
  Country: None (occurrence: None)
  Receive Date: 20070501
  Receipt Date: 20070212
  Transmission Date: 20071010
  Serious: No
  Sender: FDA-Public Use
  Company Number: 200711057US

PATIENT
  Sex: Female

DRUGS (1)
  1. KETEK [Suspect]
     Indication: WHITE BLOOD CELL COUNT INCREASED
     Dates: start: 20060101

REACTIONS (1)
  - ABDOMINAL PAIN UPPER [None]
